FAERS Safety Report 7173029-0 (Version None)
Quarter: 2010Q4

REPORT INFORMATION
  Report Type: 
  Country: None (occurrence: None)
  Receive Date: 20101219
  Receipt Date: 20100218
  Transmission Date: 20110411
  Serious: No
  Sender: FDA-Public Use
  Company Number: US-AMGEN-KDL393130

PATIENT

DRUGS (14)
  1. ENBREL [Suspect]
     Indication: ANKYLOSING SPONDYLITIS
     Dosage: 50 MG, QWK
     Route: 058
     Dates: start: 20090910, end: 20100201
  2. ENBREL [Suspect]
     Indication: PRODUCT USED FOR UNKNOWN INDICATION
  3. CELECOXIB [Concomitant]
     Dosage: 200 MG, BID
     Route: 048
     Dates: start: 20090519
  4. METHOTREXATE [Concomitant]
     Dosage: 2.5 MG, QD
     Route: 048
     Dates: start: 20091118
  5. FOLIC ACID [Concomitant]
     Dosage: 1 MG, QD
     Route: 048
     Dates: start: 20091118
  6. SODIUM ALGINATE/SODIUM BICARBONATE [Concomitant]
     Dosage: UNK UNK, PRN
     Dates: start: 20071127
  7. IBANDRONATE SODIUM [Concomitant]
     Dosage: 150 MG, QMO
     Route: 048
     Dates: start: 20060113, end: 20090918
  8. OMEPRAZOLE [Concomitant]
     Dosage: UNK UNK, QD
     Route: 048
     Dates: start: 20050719
  9. MULTI-VITAMINS [Concomitant]
     Dosage: UNK UNK, UNK
     Dates: start: 20050719
  10. OSCAL [Concomitant]
     Dosage: UNK UNK, BID
     Route: 048
     Dates: start: 20050719
  11. LOVAZA [Concomitant]
     Dosage: 1000 MG, QD
     Route: 048
  12. TRIAMTERENE AND HYDROCHLOROTHIAZIDE [Concomitant]
     Dosage: UNK UNK, QD
     Route: 048
  13. ACTONEL [Concomitant]
     Dosage: 150 MG, QMO
  14. DICLOFENAC SODIUM [Concomitant]
     Dosage: 2 G, QID
     Route: 061

REACTIONS (6)
  - DRUG INEFFECTIVE [None]
  - HYPERTENSION [None]
  - JOINT STIFFNESS [None]
  - NAUSEA [None]
  - OSTEOARTHRITIS [None]
  - PAIN IN EXTREMITY [None]
